FAERS Safety Report 8234296-5 (Version None)
Quarter: 2012Q1

REPORT INFORMATION
  Report Type: 
  Country: None (occurrence: None)
  Receive Date: 20120326
  Receipt Date: 20120316
  Transmission Date: 20120608
  Serious: Yes (Hospitalization, Other)
  Sender: FDA-Public Use
  Company Number: US-BAYER-2011-094934

PATIENT
  Age: 19 Year
  Sex: Female
  Weight: 54 kg

DRUGS (5)
  1. YAZ [Suspect]
     Indication: ACNE
     Dosage: UNK
     Dates: start: 20090129, end: 20090801
  2. XIFAXAN [Concomitant]
     Dosage: UNK
     Dates: start: 20020101
  3. LORAZEPAM [Concomitant]
     Dosage: UNK
     Dates: start: 19950101
  4. LOESTRIN FE 1/20 [Concomitant]
     Dosage: UNK
     Dates: start: 20090701
  5. CEFUROXIME [Concomitant]
     Dosage: UNK
     Dates: start: 20080101

REACTIONS (19)
  - BUDD-CHIARI SYNDROME [None]
  - PULMONARY EMBOLISM [None]
  - INJURY [None]
  - ANXIETY [None]
  - THROMBOSIS [None]
  - HEPATIC ENCEPHALOPATHY [None]
  - NODULAR REGENERATIVE HYPERPLASIA [None]
  - INCREASED TENDENCY TO BRUISE [None]
  - MENTAL DISORDER [None]
  - INSOMNIA [None]
  - OEDEMA PERIPHERAL [None]
  - ANHEDONIA [None]
  - ABDOMINAL DISTENSION [None]
  - BLOOD URINE PRESENT [None]
  - DISTURBANCE IN ATTENTION [None]
  - PAIN [None]
  - AMENORRHOEA [None]
  - DEPRESSED MOOD [None]
  - DECREASED ACTIVITY [None]
